FAERS Safety Report 5958187-5 (Version None)
Quarter: 2008Q4

REPORT INFORMATION
  Report Type: 
  Country: None (occurrence: None)
  Receive Date: 20081117
  Receipt Date: 20081117
  Transmission Date: 20090506
  Serious: Yes (Other)
  Sender: FDA-Public Use
  Company Number: None

PATIENT
  Sex: Female
  Weight: 63.5036 kg

DRUGS (1)
  1. CYMBALTA [Suspect]
     Indication: DEPRESSION
     Dosage: 60MG ONCE A DAY
     Dates: start: 20060101, end: 20081010

REACTIONS (6)
  - ADVERSE REACTION [None]
  - ALTERED STATE OF CONSCIOUSNESS [None]
  - BEDRIDDEN [None]
  - DRUG WITHDRAWAL SYNDROME [None]
  - FEELING ABNORMAL [None]
  - PERFORMANCE STATUS DECREASED [None]
